FAERS Safety Report 4331744-8 (Version None)
Quarter: 2004Q2

REPORT INFORMATION
  Report Type: 
  Country: None (occurrence: None)
  Receive Date: 20040405
  Receipt Date: 20030519
  Transmission Date: 20050107
  Serious: No
  Sender: FDA-Public Use
  Company Number: US-GLAXOSMITHKLINE-A0409300A

PATIENT
  Age: 80 Year
  Sex: Female

DRUGS (4)
  1. FLOVENT [Suspect]
     Indication: ASTHMA
     Dosage: 2PUFF THREE TIMES PER DAY
     Route: 055
  2. COMBIVENT [Concomitant]
  3. ACTONEL [Concomitant]
  4. ARMOUR [Concomitant]

REACTIONS (3)
  - FATIGUE [None]
  - ORAL MUCOSAL BLISTERING [None]
  - ORAL PAIN [None]
